FAERS Safety Report 11232610 (Version 1)
Quarter: 2015Q3

REPORT INFORMATION
  Report Type: Other
  Country: MX (occurrence: MX)
  Receive Date: 20150701
  Receipt Date: 20150701
  Transmission Date: 20151125
  Serious: Yes (Hospitalization)
  Sender: FDA-Public Use
  Company Number: MX-SHIRE-MX201506594

PATIENT
  Age: 12 Year
  Sex: Male
  Weight: 24 kg

DRUGS (1)
  1. ELAPRASE [Suspect]
     Active Substance: IDURSULFASE
     Indication: MUCOPOLYSACCHARIDOSIS II
     Dosage: 12 MG (2 VIALS), 1X/WEEK
     Route: 041

REACTIONS (6)
  - Infusion related reaction [Unknown]
  - Hyperhidrosis [Unknown]
  - Tremor [Unknown]
  - Pyrexia [Unknown]
  - Cyanosis [Unknown]
  - Rash [Unknown]

NARRATIVE: CASE EVENT DATE: 20150619
